FAERS Safety Report 4381373-5 (Version None)
Quarter: 2004Q2

REPORT INFORMATION
  Report Type: 
  Country: None (occurrence: None)
  Receive Date: 20040616
  Receipt Date: 20040607
  Transmission Date: 20050107
  Serious: Yes (Other)
  Sender: FDA-Public Use
  Company Number: ZONI001448

PATIENT
  Age: 51 Year
  Sex: Female
  Weight: 88 kg

DRUGS (3)
  1. ZONEGRAN [Suspect]
     Indication: EPILEPSY
     Dosage: 300 MG DAILY ORAL
     Route: 048
     Dates: start: 20030201, end: 20030703
  2. MYSOLINE [Suspect]
     Dosage: 750 MG DAILY
  3. ZOLOFT [Concomitant]

REACTIONS (5)
  - ABNORMAL BEHAVIOUR [None]
  - ANGER [None]
  - EMOTIONAL DISTRESS [None]
  - HALLUCINATION [None]
  - WEIGHT DECREASED [None]
